FAERS Safety Report 13581912 (Version 1)
Quarter: 2017Q2

REPORT INFORMATION
  Report Type: Spontaneous
  Country: US (occurrence: US)
  Receive Date: 20170525
  Receipt Date: 20170525
  Transmission Date: 20170830
  Serious: Yes (Other)
  Sender: FDA-Public Use
  Company Number: US-PFIZER INC-2017225800

PATIENT
  Age: 34 Year
  Sex: Female
  Weight: 104.3 kg

DRUGS (2)
  1. EFFEXOR XR [Suspect]
     Active Substance: VENLAFAXINE HYDROCHLORIDE
     Indication: ANXIETY
     Dosage: (3-75MG TABLETS ONCE DAILY)
     Dates: start: 1999
  2. EFFEXOR XR [Suspect]
     Active Substance: VENLAFAXINE HYDROCHLORIDE
     Indication: DEPRESSION
     Dosage: (2-75MG TABLETS ONCE DAILY)

REACTIONS (7)
  - Headache [Recovered/Resolved]
  - Cerebrovascular accident [Unknown]
  - Intentional product use issue [Unknown]
  - Withdrawal syndrome [Recovered/Resolved]
  - Nausea [Recovered/Resolved]
  - Fatigue [Recovered/Resolved]
  - Drug dose omission [Unknown]

NARRATIVE: CASE EVENT DATE: 2011
